FAERS Safety Report 8757631 (Version 1)
Quarter: 2012Q4

REPORT INFORMATION
  Report Type: 
  Country: US (occurrence: US)
  Receive Date: 20120828
  Receipt Date: 20120828
  Transmission Date: 20130627
  Serious: Yes (Other)
  Sender: FDA-Public Use
  Company Number: PHHY2012US072943

PATIENT
  Age: 86 Year
  Sex: Female

DRUGS (5)
  1. PREDNISONE [Suspect]
  2. WARFARIN [Suspect]
  3. TERIPARATIDE [Suspect]
     Indication: OSTEOPOROSIS
  4. CALCIUM [Concomitant]
  5. VITAMIN D [Concomitant]

REACTIONS (6)
  - Calciphylaxis [Recovering/Resolving]
  - Erythema [Recovering/Resolving]
  - Skin lesion [Recovering/Resolving]
  - Skin necrosis [Recovering/Resolving]
  - Fat necrosis [Recovering/Resolving]
  - Vascular calcification [Recovering/Resolving]
